FAERS Safety Report 4410602-4 (Version None)
Quarter: 2004Q3

REPORT INFORMATION
  Report Type: 
  Country: None (occurrence: None)
  Receive Date: 20040728
  Receipt Date: 20040728
  Transmission Date: 20050211
  Serious: Yes (Hospitalization)
  Sender: FDA-Public Use
  Company Number: None

PATIENT
  Age: 40 Year
  Sex: Male
  Weight: 83.9 kg

DRUGS (7)
  1. ENALAPRIL MALEATE [Suspect]
     Indication: HYPERTENSION
     Dosage: 10 MG PO QD
     Route: 048
  2. PROTONIX [Concomitant]
  3. CALCIUM CARB [Concomitant]
  4. LASIX [Concomitant]
  5. AMBIEN [Concomitant]
  6. NPH + REG INSULIN [Concomitant]
  7. PERCOCET [Concomitant]

REACTIONS (2)
  - DYSPNOEA [None]
  - SWELLING FACE [None]
